FAERS Safety Report 7645445-1 (Version None)
Quarter: 2011Q3

REPORT INFORMATION
  Report Type: 
  Country: None (occurrence: None)
  Receive Date: 20110729
  Receipt Date: 20110725
  Transmission Date: 20111222
  Serious: Yes (Other)
  Sender: FDA-Public Use
  Company Number: CH-PFIZER INC-2011129493

PATIENT
  Age: 71 Year
  Sex: Male

DRUGS (8)
  1. TEBOKAN [Concomitant]
     Dosage: 80 UNK, 2X/DAY
     Route: 048
     Dates: start: 20100101, end: 20110527
  2. RITALIN [Concomitant]
     Dosage: 10 MG, 2X/DAY
     Route: 048
     Dates: start: 20100101, end: 20110501
  3. ANAFRANIL [Suspect]
     Indication: DRUG DEPENDENCE
  4. LORAZEPAM [Concomitant]
     Dosage: 7.5 MG, 1X/DAY
     Route: 048
     Dates: start: 19600101
  5. ANAFRANIL [Suspect]
     Indication: DEPRESSION
     Dosage: 10 MG, 1X/DAY
     Route: 048
     Dates: start: 20110527, end: 20110617
  6. TRAZODONE HCL [Suspect]
     Indication: DEPRESSION
     Dosage: 75 MG, 2X/DAY
     Route: 048
     Dates: start: 20100601, end: 20110524
  7. TRAZODONE HCL [Suspect]
     Indication: DRUG DEPENDENCE
  8. ASPIRIN [Concomitant]
     Dosage: 100 UNK, 1X/DAY
     Route: 048
     Dates: start: 20050101, end: 20110501

REACTIONS (4)
  - CRYING [None]
  - DIZZINESS [None]
  - DRUG WITHDRAWAL SYNDROME [None]
  - SUICIDAL IDEATION [None]
